FAERS Safety Report 6537728-3 (Version None)
Quarter: 2010Q1

REPORT INFORMATION
  Report Type: 
  Country: None (occurrence: None)
  Receive Date: 20100114
  Receipt Date: 20100104
  Transmission Date: 20100710
  Serious: Yes (Hospitalization)
  Sender: FDA-Public Use
  Company Number: DE-WYE-H12865610

PATIENT
  Age: 55 Year
  Sex: Male

DRUGS (3)
  1. PANTOPRAZOLE [Suspect]
     Dosage: OVERDOSE AMOUNT WAS TWENTY, 40 MG TABLETS
     Route: 048
     Dates: start: 20090906, end: 20090906
  2. IBUPROFEN [Suspect]
     Dosage: OVERDOSE AMOUNT WAS TWENTY 600 MG TABLETS
     Route: 048
     Dates: start: 20090906, end: 20090906
  3. HALDOL [Suspect]
     Dosage: OVERDOSE AMOUNT UNKNOWN
     Route: 048
     Dates: start: 20090906, end: 20090906

REACTIONS (2)
  - INTENTIONAL OVERDOSE [None]
  - SUICIDE ATTEMPT [None]
